FAERS Safety Report 17853489 (Version 2)
Quarter: 2020Q2

REPORT INFORMATION
  Report Type: Spontaneous
  Country: JP (occurrence: JP)
  Receive Date: 20200602
  Receipt Date: 20200611
  Transmission Date: 20200714
  Serious: Yes (Death, Other)
  Sender: FDA-Public Use
  Company Number: JP-JAZZ-2020-JP-006961

PATIENT

DRUGS (1)
  1. DEFITELIO [Suspect]
     Active Substance: DEFIBROTIDE SODIUM
     Indication: VENOOCCLUSIVE LIVER DISEASE
     Dosage: TWO UNKNOWN DOSES
     Route: 042
     Dates: start: 20200526, end: 20200526

REACTIONS (6)
  - Organ failure [Unknown]
  - Haemorrhage [Unknown]
  - Condition aggravated [Unknown]
  - Off label use [Unknown]
  - Venoocclusive liver disease [Unknown]
  - Death [Fatal]

NARRATIVE: CASE EVENT DATE: 2020
